FAERS Safety Report 17678491 (Version 1)
Quarter: 2020Q2

REPORT INFORMATION
  Report Type: Spontaneous
  Country: BR (occurrence: BR)
  Receive Date: 20200417
  Receipt Date: 20200417
  Transmission Date: 20200714
  Serious: Yes (Other)
  Sender: FDA-Public Use
  Company Number: BR-ABBVIE-20K-020-3368220-00

PATIENT
  Sex: Female
  Weight: 57 kg

DRUGS (5)
  1. AMITRIPTYLINE HYDROCHLORIDE. [Suspect]
     Active Substance: AMITRIPTYLINE HYDROCHLORIDE
     Indication: RELAXATION THERAPY
  2. CLONAZEPAM. [Suspect]
     Active Substance: CLONAZEPAM
     Indication: PRODUCT USED FOR UNKNOWN INDICATION
     Route: 048
  3. HUMIRA [Suspect]
     Active Substance: ADALIMUMAB
     Indication: RHEUMATOID ARTHRITIS
     Route: 058
  4. AMITRIPTYLINE HYDROCHLORIDE. [Suspect]
     Active Substance: AMITRIPTYLINE HYDROCHLORIDE
     Indication: ANTIDEPRESSANT THERAPY
     Route: 048
     Dates: start: 2018
  5. DELLER [Concomitant]
     Indication: ANXIETY
     Dosage: 1 TABLET AT MORNING AND 2 AT NIGHT
     Route: 048
     Dates: start: 20200405

REACTIONS (6)
  - Prescription drug used without a prescription [Unknown]
  - Mobility decreased [Unknown]
  - Somnolence [Unknown]
  - Benign breast neoplasm [Recovered/Resolved]
  - Suicide attempt [Unknown]
  - Drug ineffective [Unknown]
